FAERS Safety Report 9641903 (Version 1)
Quarter: 2013Q4

REPORT INFORMATION
  Report Type: Spontaneous
  Country: US (occurrence: US)
  Receive Date: 20131023
  Receipt Date: 20131023
  Transmission Date: 20140711
  Serious: Yes (Other)
  Sender: FDA-Public Use
  Company Number: US-TEVA-439043USA

PATIENT
  Age: 57 Year
  Sex: Female
  Weight: 96.25 kg

DRUGS (2)
  1. WARFARIN [Suspect]
     Indication: ATRIAL FIBRILLATION
  2. XELJANZ (TOFACITINIB) [Suspect]
     Indication: RHEUMATOID ARTHRITIS
     Dosage: 10 MILLIGRAM DAILY;
     Dates: start: 20130904, end: 20131004

REACTIONS (13)
  - Myocardial infarction [Unknown]
  - Oropharyngeal pain [Recovered/Resolved]
  - Glossodynia [Not Recovered/Not Resolved]
  - Breast disorder [Recovered/Resolved]
  - Hormone level abnormal [Recovered/Resolved]
  - Headache [Recovered/Resolved]
  - Heart rate increased [Recovered/Resolved]
  - Migraine [Recovered/Resolved]
  - Nasal congestion [Recovered/Resolved]
  - Pruritus [Recovered/Resolved]
  - Heart rate irregular [Recovered/Resolved]
  - Urticaria [Recovered/Resolved]
  - Arthritis [Unknown]
